FAERS Safety Report 13618497 (Version 1)
Quarter: 2017Q2

REPORT INFORMATION
  Report Type: Spontaneous
  Country: US (occurrence: US)
  Receive Date: 20170606
  Receipt Date: 20170606
  Transmission Date: 20170830
  Serious: Yes (Hospitalization, Other)
  Sender: FDA-Public Use
  Company Number: US-PFIZER INC-2017240059

PATIENT
  Age: 53 Year
  Sex: Female
  Weight: 61.22 kg

DRUGS (6)
  1. ZITHROMAX [Suspect]
     Active Substance: AZITHROMYCIN DIHYDRATE
     Indication: SCIATIC NERVE INJURY
  2. PREDNISONE. [Suspect]
     Active Substance: PREDNISONE
     Indication: SCIATIC NERVE INJURY
  3. ZITHROMAX [Suspect]
     Active Substance: AZITHROMYCIN DIHYDRATE
     Indication: SCIATICA
     Dosage: UNK, USED AS DIRECTED
     Route: 048
     Dates: start: 20141205, end: 20141209
  4. PREDNISONE. [Suspect]
     Active Substance: PREDNISONE
     Indication: SINUSITIS
     Dosage: UNK, USED AS DIRECTED
     Route: 048
     Dates: start: 20120208, end: 20120212
  5. ZITHROMAX [Suspect]
     Active Substance: AZITHROMYCIN DIHYDRATE
     Indication: SINUSITIS
     Dosage: UNK, USED AS DIRECTED
     Route: 048
     Dates: start: 20120208, end: 20120212
  6. PREDNISONE. [Suspect]
     Active Substance: PREDNISONE
     Indication: SCIATICA
     Dosage: UNK, USED AS DIRECTED
     Route: 048
     Dates: start: 20141205, end: 20141209

REACTIONS (5)
  - Pancreatitis [Recovered/Resolved]
  - Dehydration [Recovered/Resolved]
  - Hepatic failure [Recovered/Resolved]
  - Abdominal pain [Recovered/Resolved]
  - Malaise [Recovered/Resolved]

NARRATIVE: CASE EVENT DATE: 20120213
